FAERS Safety Report 23706129 (Version 2)
Quarter: 2024Q2

REPORT INFORMATION
  Report Type: Spontaneous
  Country: BR (occurrence: BR)
  Receive Date: 20240404
  Receipt Date: 20240606
  Transmission Date: 20240715
  Serious: Yes (Other)
  Sender: FDA-Public Use
  Company Number: BR-002147023-NVSC2024BR067633

PATIENT
  Age: 42 Year
  Sex: Female

DRUGS (1)
  1. XOLAIR [Suspect]
     Active Substance: OMALIZUMAB
     Indication: Product used for unknown indication
     Dosage: 150MG (2 AMPOULES) (150 MG/ML)
     Route: 065
     Dates: start: 202311

REACTIONS (5)
  - Angioedema [Recovering/Resolving]
  - Urticaria [Not Recovered/Not Resolved]
  - Swelling face [Recovering/Resolving]
  - Eye swelling [Recovering/Resolving]
  - Pruritus [Not Recovered/Not Resolved]

NARRATIVE: CASE EVENT DATE: 20231201
